FAERS Safety Report 19081581 (Version 1)
Quarter: 2021Q2

REPORT INFORMATION
  Report Type: Spontaneous
  Country: US (occurrence: US)
  Receive Date: 20210401
  Receipt Date: 20210401
  Transmission Date: 20210717
  Serious: No
  Sender: FDA-Public Use
  Company Number: US-AMGEN-USASP2021046407

PATIENT
  Sex: Female

DRUGS (5)
  1. BENADRYL [Concomitant]
     Active Substance: DIPHENHYDRAMINE HYDROCHLORIDE
  2. PROLIA [Suspect]
     Active Substance: DENOSUMAB
     Indication: OSTEOPOROSIS POSTMENOPAUSAL
     Dosage: UNK
     Route: 065
  3. RETIN?A [Concomitant]
     Active Substance: TRETINOIN
  4. HYALURONIC ACID [Concomitant]
     Active Substance: HYALURONIC ACID
  5. HYDROCORTISONE. [Concomitant]
     Active Substance: HYDROCORTISONE

REACTIONS (6)
  - Rash [Recovering/Resolving]
  - Musculoskeletal stiffness [Unknown]
  - Lip erythema [Recovering/Resolving]
  - Arthralgia [Unknown]
  - Lip dry [Recovering/Resolving]
  - Burning sensation [Recovering/Resolving]
